FAERS Safety Report 13562162 (Version 4)
Quarter: 2018Q1

REPORT INFORMATION
  Report Type: Spontaneous
  Country: US (occurrence: US)
  Receive Date: 20170519
  Receipt Date: 20180309
  Transmission Date: 20180508
  Serious: Yes (Hospitalization, Other)
  Sender: FDA-Public Use
  Company Number: US-BIOGEN-2017BI00403572

PATIENT
  Age: 13 Year
  Sex: Male

DRUGS (1)
  1. SPINRAZA [Suspect]
     Active Substance: NUSINERSEN
     Indication: SPINAL MUSCULAR ATROPHY
     Dosage: LOADING DOSE:  FIRST 3 Q 14 DAYS, 4TH ONCE AFTER 30 DAYS
     Route: 037
     Dates: start: 20170412

REACTIONS (4)
  - Post lumbar puncture syndrome [Unknown]
  - Post procedural complication [Unknown]
  - Meningitis aseptic [Recovered/Resolved]
  - Pachymeningitis [Unknown]

NARRATIVE: CASE EVENT DATE: 20170510
